FAERS Safety Report 11245426 (Version 1)
Quarter: 2015Q3

REPORT INFORMATION
  Report Type: Spontaneous
  Country: DE (occurrence: DE)
  Receive Date: 20150707
  Receipt Date: 20150707
  Transmission Date: 20151125
  Serious: Yes (Hospitalization)
  Sender: FDA-Public Use
  Company Number: DE-BAXALTA-2015BAX027414

PATIENT
  Age: 56 Year
  Sex: Female
  Weight: 86 kg

DRUGS (6)
  1. KIOVIG [Suspect]
     Active Substance: HUMAN IMMUNOGLOBULIN G
     Indication: MULTIFOCAL MOTOR NEUROPATHY
     Dosage: OF THE SHEDULED 80 GRAMS
     Route: 042
     Dates: start: 20150225, end: 20150225
  2. RAMIPRIL. [Concomitant]
     Active Substance: RAMIPRIL
     Indication: HYPERTENSION
     Dosage: 5MILLIGRAM
     Route: 048
     Dates: start: 201211
  3. SIMVASTATIN. [Concomitant]
     Active Substance: SIMVASTATIN
     Indication: HYPERLIPIDAEMIA
     Dosage: 40MILLIGRAM
     Route: 048
     Dates: start: 201211
  4. KELTICAN FORTE [Concomitant]
     Indication: PRODUCT USED FOR UNKNOWN INDICATION
     Dosage: UNK
     Route: 048
  5. L-THYROX JOD HEXAL [Concomitant]
     Indication: HYPOTHYROIDISM
     Dosage: 50/150
     Route: 048
     Dates: start: 201211
  6. PANTOZOL [Concomitant]
     Active Substance: PANTOPRAZOLE SODIUM
     Indication: DYSPEPSIA
     Dosage: 40MILLIGRAM
     Route: 048
     Dates: start: 201211

REACTIONS (8)
  - Rash [Recovered/Resolved]
  - Swollen tongue [Recovered/Resolved]
  - Cold sweat [Recovered/Resolved]
  - Anxiety [Recovered/Resolved]
  - Hypotension [Recovered/Resolved]
  - Lip swelling [Recovered/Resolved]
  - Pruritus [Recovered/Resolved]
  - Pallor [Recovered/Resolved]

NARRATIVE: CASE EVENT DATE: 20150225
